FAERS Safety Report 24795252 (Version 1)
Quarter: 2024Q4

REPORT INFORMATION
  Report Type: Spontaneous
  Country: US (occurrence: None)
  Receive Date: 20241231
  Receipt Date: 20241231
  Transmission Date: 20250114
  Serious: Yes (Disabling)
  Sender: Public
  Company Number: None

PATIENT
  Age: 18 Year
  Sex: Male
  Weight: 69.75 kg

DRUGS (1)
  1. HERBALS\TETRAHYDROCANNABINOL MIXED [Suspect]
     Active Substance: HERBALS\TETRAHYDROCANNABINOL MIXED
     Dosage: OTHER QUANTITY : 1 GUMMY;?
     Route: 048
     Dates: start: 20241230, end: 20241230

REACTIONS (7)
  - Vomiting [None]
  - Anxiety [None]
  - Confusional state [None]
  - Stupor [None]
  - Gait disturbance [None]
  - Speech disorder [None]
  - Movement disorder [None]

NARRATIVE: CASE EVENT DATE: 20241230
